FAERS Safety Report 6029847-5 (Version None)
Quarter: 2009Q1

REPORT INFORMATION
  Report Type: 
  Country: None (occurrence: None)
  Receive Date: 20090106
  Receipt Date: 20090106
  Transmission Date: 20090719
  Serious: Yes (Life-Threatening)
  Sender: FDA-Public Use
  Company Number: None

PATIENT
  Sex: Female
  Weight: 63.5036 kg

DRUGS (1)
  1. LYRICA [Suspect]
     Dosage: 1 CAP 2 X A DAY
     Dates: start: 20081112, end: 20081120

REACTIONS (2)
  - BLOOD PRESSURE DECREASED [None]
  - COORDINATION ABNORMAL [None]
